FAERS Safety Report 9139293 (Version 3)
Quarter: 2013Q3

REPORT INFORMATION
  Report Type: Report from Study
  Country: BR (occurrence: BR)
  Receive Date: 20130305
  Receipt Date: 20130708
  Transmission Date: 20140515
  Serious: Yes (Hospitalization, Other)
  Sender: FDA-Public Use
  Company Number: BR-ELI_LILLY_AND_COMPANY-BR201302007433

PATIENT
  Age: 63 Year
  Sex: Female
  Weight: 113 kg

DRUGS (5)
  1. TERIPARATIDE [Suspect]
     Indication: OSTEOPOROSIS
     Dosage: UNK, QD
     Route: 058
     Dates: start: 201202, end: 201208
  2. TERIPARATIDE [Suspect]
     Indication: FRACTURE
  3. ALDACTONE [Concomitant]
     Dosage: UNK, UNKNOWN
     Route: 065
  4. MAREVAN [Concomitant]
     Indication: THROMBOSIS
     Dosage: UNK, UNKNOWN
     Route: 065
  5. MATERNA [Concomitant]
     Dosage: UNK, UNKNOWN
     Route: 065

REACTIONS (7)
  - Erysipelas [Recovering/Resolving]
  - Suture rupture [Recovering/Resolving]
  - Weight decreased [Unknown]
  - Syncope [Unknown]
  - Vomiting [Unknown]
  - Dysentery [Unknown]
  - Lumbar vertebral fracture [Recovering/Resolving]
